FAERS Safety Report 6971863-0 (Version None)
Quarter: 2010Q3

REPORT INFORMATION
  Report Type: 
  Country: None (occurrence: None)
  Receive Date: 20100908
  Receipt Date: 20100907
  Transmission Date: 20110219
  Serious: Yes (Hospitalization)
  Sender: FDA-Public Use
  Company Number: US-GILEAD-2010-0031202

PATIENT
  Sex: Male
  Weight: 95.34 kg

DRUGS (20)
  1. LETAIRIS [Suspect]
     Indication: PULMONARY ARTERIAL HYPERTENSION
     Route: 048
     Dates: start: 20081125
  2. REVATIO [Concomitant]
  3. TYVASO [Concomitant]
  4. OXYGEN [Concomitant]
  5. PLAVIX [Concomitant]
  6. LASIX [Concomitant]
  7. TOPROL-XL [Concomitant]
  8. RANEXA [Concomitant]
  9. PRAVASTATIN [Concomitant]
  10. ADVAIR DISKUS 100/50 [Concomitant]
  11. VENTOLIN [Concomitant]
  12. LANTUS [Concomitant]
  13. METFORMIN HCL [Concomitant]
  14. NOVOLOG [Concomitant]
  15. ACIPHEX [Concomitant]
  16. MIRTAZAPINE [Concomitant]
  17. CLONAZEPAM [Concomitant]
  18. CHOLESTYRAMINE [Concomitant]
  19. NEURONTIN [Concomitant]
  20. POTASSIUM [Concomitant]

REACTIONS (1)
  - PNEUMONIA [None]
